FAERS Safety Report 6938016-3 (Version None)
Quarter: 2010Q3

REPORT INFORMATION
  Report Type: 
  Country: None (occurrence: None)
  Receive Date: 20100824
  Receipt Date: 20100816
  Transmission Date: 20110219
  Serious: Yes (Hospitalization)
  Sender: FDA-Public Use
  Company Number: CA-SHIRE-SPV1-2010-01428

PATIENT

DRUGS (1)
  1. IDURSULFASE [Suspect]
     Indication: MUCOPOLYSACCHARIDOSIS II
     Dosage: 18MG, 1X/WEEK
     Route: 041
     Dates: start: 20100809

REACTIONS (1)
  - RESPIRATORY DISTRESS [None]
